FAERS Safety Report 12328482 (Version 1)
Quarter: 2016Q2

REPORT INFORMATION
  Report Type: Spontaneous
  Country: US (occurrence: US)
  Receive Date: 20160503
  Receipt Date: 20160503
  Transmission Date: 20160815
  Serious: No
  Sender: FDA-Public Use
  Company Number: US-BEH-2015048265

PATIENT
  Sex: Female
  Weight: 58 kg

DRUGS (32)
  1. AUGMENTIN [Concomitant]
     Active Substance: AMOXICILLIN\CLAVULANATE POTASSIUM
  2. FLONASE [Concomitant]
     Active Substance: FLUTICASONE PROPIONATE
  3. FISH OIL [Concomitant]
     Active Substance: FISH OIL
  4. SEPTRA DS [Concomitant]
     Active Substance: SULFAMETHOXAZOLE\TRIMETHOPRIM
  5. LAMICTAL [Concomitant]
     Active Substance: LAMOTRIGINE
  6. ZOFRAN [Concomitant]
     Active Substance: ONDANSETRON HYDROCHLORIDE
  7. PROGESTERONE. [Concomitant]
     Active Substance: PROGESTERONE
  8. SINGULAIR [Concomitant]
     Active Substance: MONTELUKAST SODIUM
  9. MEDROL [Concomitant]
     Active Substance: METHYLPREDNISOLONE
  10. MOBIC [Concomitant]
     Active Substance: MELOXICAM
  11. ALLEGRA [Concomitant]
     Active Substance: FEXOFENADINE HYDROCHLORIDE
  12. ASTELIN [Concomitant]
     Active Substance: AZELASTINE HYDROCHLORIDE
  13. WELLBUTRIN XL [Concomitant]
     Active Substance: BUPROPION HYDROCHLORIDE
  14. DIPHENHYDRAMINE. [Concomitant]
     Active Substance: DIPHENHYDRAMINE
  15. LIDOCAINE/PRILOCAINE [Concomitant]
  16. CYTOTEC [Concomitant]
     Active Substance: MISOPROSTOL
  17. NEURONTIN [Concomitant]
     Active Substance: GABAPENTIN
  18. VIVELLE-DOT [Concomitant]
     Active Substance: ESTRADIOL
  19. MONTELUKAST [Concomitant]
     Active Substance: MONTELUKAST SODIUM
  20. VITAMIN B2 [Concomitant]
     Active Substance: RIBOFLAVIN
  21. DHEA [Concomitant]
     Active Substance: PRASTERONE
  22. GAS-X [Concomitant]
     Active Substance: DIMETHICONE
  23. FLAXSEED [Concomitant]
     Active Substance: FLAX SEED
  24. DIGESTIVE ENZYME [Concomitant]
     Active Substance: UNSPECIFIED INGREDIENT
  25. ZOLOFT [Concomitant]
     Active Substance: SERTRALINE HYDROCHLORIDE
  26. MUCINEX ER [Concomitant]
  27. MULTIVITAMIN [Concomitant]
     Active Substance: VITAMINS
  28. HIZENTRA [Suspect]
     Active Substance: HUMAN IMMUNOGLOBULIN G
     Indication: IMMUNODEFICIENCY COMMON VARIABLE
     Route: 058
  29. ACETAMINOPHEN. [Concomitant]
     Active Substance: ACETAMINOPHEN
  30. EPIPEN [Concomitant]
     Active Substance: EPINEPHRINE
  31. METHYLCOBALAMIN. [Concomitant]
     Active Substance: METHYLCOBALAMIN
  32. KLONOPIN [Concomitant]
     Active Substance: CLONAZEPAM

REACTIONS (4)
  - Pruritus [Unknown]
  - Nodule [Unknown]
  - Administration site pain [Unknown]
  - Erythema [Unknown]
